FAERS Safety Report 5903165-5 (Version None)
Quarter: 2008Q3

REPORT INFORMATION
  Report Type: 
  Country: None (occurrence: None)
  Receive Date: 20080929
  Receipt Date: 20080929
  Transmission Date: 20090109
  Serious: Yes (Hospitalization)
  Sender: FDA-Public Use
  Company Number: None

PATIENT
  Sex: Male
  Weight: 88 kg

DRUGS (2)
  1. PROPOFOL [Suspect]
     Indication: CARDIOVERSION
     Dosage: 40 MG ONCE IV BOLUS, ONE TIME DOSE
     Route: 040
  2. PROPOFOL [Suspect]
     Indication: SEDATION
     Dosage: 40 MG ONCE IV BOLUS, ONE TIME DOSE
     Route: 040

REACTIONS (4)
  - BRONCHOSPASM [None]
  - HYPERSENSITIVITY [None]
  - HYPOXIA [None]
  - SINUS TACHYCARDIA [None]
